FAERS Safety Report 17582960 (Version 1)
Quarter: 2020Q1

REPORT INFORMATION
  Report Type: Spontaneous
  Country: US (occurrence: US)
  Receive Date: 20200325
  Receipt Date: 20200325
  Transmission Date: 20200409
  Serious: No
  Sender: FDA-Public Use
  Company Number: US-ENDO PHARMACEUTICALS INC-2019-110613

PATIENT
  Sex: Male

DRUGS (2)
  1. AVEED [Suspect]
     Active Substance: TESTOSTERONE UNDECANOATE
     Dosage: UNK UNKNOWN, ^MULTIPLE INJECTIONS^
     Route: 065
  2. AVEED [Suspect]
     Active Substance: TESTOSTERONE UNDECANOATE
     Indication: PRODUCT USED FOR UNKNOWN INDICATION
     Dosage: 1/3 OF MEDICATION INTO THE RIGHT HIP
     Route: 065
     Dates: start: 20191202

REACTIONS (3)
  - Injection site rash [Unknown]
  - Blood pressure decreased [Recovered/Resolved]
  - Injection site pain [Unknown]

NARRATIVE: CASE EVENT DATE: 20191202
